FAERS Safety Report 5637027-8 (Version None)
Quarter: 2008Q1

REPORT INFORMATION
  Report Type: 
  Country: None (occurrence: None)
  Receive Date: 20080225
  Receipt Date: 20070606
  Transmission Date: 20080703
  Serious: No
  Sender: FDA-Public Use
  Company Number: US-BRISTOL-MYERS SQUIBB COMPANY-13806088

PATIENT
  Age: 66 Year
  Sex: Female

DRUGS (3)
  1. GLUCOPHAGE [Suspect]
     Dates: start: 19990101
  2. METFORMIN HCL [Suspect]
  3. GLUCOTROL [Suspect]
     Dates: start: 20060101

REACTIONS (2)
  - BURNING SENSATION [None]
  - RASH [None]
